FAERS Safety Report 10241572 (Version 1)
Quarter: 2014Q2

REPORT INFORMATION
  Report Type: Spontaneous
  Country: US (occurrence: US)
  Receive Date: 20140617
  Receipt Date: 20140617
  Transmission Date: 20141212
  Serious: Yes (Hospitalization, Other)
  Sender: FDA-Public Use
  Company Number: US-JNJFOC-20140605503

PATIENT
  Age: 48 Year
  Sex: Female

DRUGS (4)
  1. INVEGA SUSTENNA [Suspect]
     Indication: PRODUCT USED FOR UNKNOWN INDICATION
     Route: 030
     Dates: start: 2014, end: 20140507
  2. TOPAMAX [Suspect]
     Indication: EPILEPSY
     Route: 048
  3. LAMICTAL [Suspect]
     Indication: EPILEPSY
     Route: 048
  4. DILANTIN [Suspect]
     Indication: EPILEPSY
     Route: 048

REACTIONS (6)
  - Hospitalisation [Recovered/Resolved]
  - Convulsion [Unknown]
  - Syncope [Unknown]
  - Galactorrhoea [Unknown]
  - Refusal of treatment by patient [Not Recovered/Not Resolved]
  - Weight increased [Unknown]
